FAERS Safety Report 7020948-1 (Version None)
Quarter: 2010Q3

REPORT INFORMATION
  Report Type: 
  Country: None (occurrence: None)
  Receive Date: 20100929
  Receipt Date: 20100924
  Transmission Date: 20110219
  Serious: Yes (Death, Hospitalization, Other)
  Sender: FDA-Public Use
  Company Number: JP-ELI_LILLY_AND_COMPANY-JP201007002204

PATIENT
  Sex: Female
  Weight: 58.2 kg

DRUGS (4)
  1. GEMZAR [Suspect]
     Indication: BREAST CANCER RECURRENT
     Dosage: 1250 MG/M2, UNK
     Route: 042
     Dates: start: 20100623, end: 20100630
  2. HERCEPTIN [Concomitant]
     Indication: BREAST CANCER RECURRENT
     Dosage: 2 MG/KG, UNK
     Route: 042
     Dates: start: 20080625
  3. HERCEPTIN [Concomitant]
     Dosage: 2 MG/KG, UNK
     Route: 042
     Dates: start: 20100714
  4. VINORELBINE TARTRATE [Concomitant]
     Indication: BREAST CANCER RECURRENT
     Route: 042
     Dates: start: 20100714

REACTIONS (4)
  - ACUTE RESPIRATORY DISTRESS SYNDROME [None]
  - INTERSTITIAL LUNG DISEASE [None]
  - LYMPHANGIOSIS CARCINOMATOSA [None]
  - WHITE BLOOD CELL COUNT DECREASED [None]
